FAERS Safety Report 21753999 (Version 1)
Quarter: 2022Q4

REPORT INFORMATION
  Report Type: Report from Study
  Country: IN (occurrence: IN)
  Receive Date: 20221220
  Receipt Date: 20221220
  Transmission Date: 20230112
  Serious: Yes (Death)
  Sender: FDA-Public Use
  Company Number: IN-002147023-NVSC2022IN293082

PATIENT
  Age: 51 Year
  Sex: Female

DRUGS (1)
  1. CERTICAN [Suspect]
     Active Substance: EVEROLIMUS
     Indication: Renal transplant
     Dosage: 0.5 MG, UNKNOWN
     Route: 048
     Dates: start: 20220308

REACTIONS (1)
  - Death [Fatal]

NARRATIVE: CASE EVENT DATE: 20221116
